FAERS Safety Report 10879693 (Version 3)
Quarter: 2015Q4

REPORT INFORMATION
  Report Type: Report from Study
  Country: US (occurrence: US)
  Receive Date: 20150302
  Receipt Date: 20151021
  Transmission Date: 20160304
  Serious: Yes (Hospitalization, Other)
  Sender: FDA-Public Use
  Company Number: US-VERTEX PHARMACEUTICALS-2015-000571

PATIENT
  Sex: Female

DRUGS (3)
  1. KALYDECO [Suspect]
     Active Substance: IVACAFTOR
     Dosage: 150 MG, TWICE A WEEK ON MONDAY + THURSDAY
     Route: 048
     Dates: start: 201505
  2. VORICONAZOLE. [Concomitant]
     Active Substance: VORICONAZOLE
  3. KALYDECO [Suspect]
     Active Substance: IVACAFTOR
     Indication: CYSTIC FIBROSIS
     Dosage: UNK, BID
     Route: 048
     Dates: start: 20120426

REACTIONS (3)
  - Dysphonia [Unknown]
  - Infective pulmonary exacerbation of cystic fibrosis [Unknown]
  - Lung disorder [Unknown]
